FAERS Safety Report 7362154-7 (Version None)
Quarter: 2011Q1

REPORT INFORMATION
  Report Type: 
  Country: None (occurrence: None)
  Receive Date: 20110309
  Receipt Date: 20110223
  Transmission Date: 20110831
  Serious: Yes (Other)
  Sender: FDA-Public Use
  Company Number: PHBS2007JP01651

PATIENT
  Age: 74 Year
  Sex: Male
  Weight: 50.0318 kg

DRUGS (1)
  1. VISUDYNE [Suspect]
     Indication: MACULAR DEGENERATION
     Dates: start: 20050804, end: 20050804

REACTIONS (3)
  - RETINAL DEGENERATION [None]
  - RETINAL PIGMENT EPITHELIAL TEAR [None]
  - RETINAL HAEMORRHAGE [None]
